FAERS Safety Report 20746246 (Version 1)
Quarter: 2022Q2

REPORT INFORMATION
  Report Type: Spontaneous
  Country: US (occurrence: US)
  Receive Date: 20220425
  Receipt Date: 20220425
  Transmission Date: 20220721
  Serious: No
  Sender: FDA-Public Use
  Company Number: US-MIRM-000375

PATIENT
  Sex: Female

DRUGS (6)
  1. LIVMARLI [Suspect]
     Active Substance: MARALIXIBAT CHLORIDE
     Indication: Congenital anomaly
     Route: 048
     Dates: start: 20211121
  2. 1326650 (GLOBALC3Sep19): Iron supplement [Concomitant]
  3. 2930643 (GLOBALC3Sep19): Liquigen [Concomitant]
  4. 1328307 (GLOBALC3Sep19): Sodium bicarbonate [Concomitant]
  5. 3641461 (GLOBALC3Sep19): AquADEKs [Concomitant]
  6. 1328777 (GLOBALC3Sep19): Ursodiol [Concomitant]

REACTIONS (1)
  - Drug ineffective [Unknown]
